FAERS Safety Report 24264716 (Version 1)
Quarter: 2024Q3

REPORT INFORMATION
  Report Type: Spontaneous
  Country: US (occurrence: None)
  Receive Date: 20240828
  Receipt Date: 20240828
  Transmission Date: 20241017
  Serious: Yes (Life-Threatening, Hospitalization)
  Sender: Public
  Company Number: None

PATIENT
  Age: 68 Year
  Sex: Male

DRUGS (3)
  1. HERBAL NOS [Suspect]
     Active Substance: HERBALS
     Indication: Arthralgia
     Dosage: OTHER QUANTITY : 1 CAPSULE(S);?FREQUENCY : DAILY;?
     Route: 048
     Dates: start: 20240125, end: 20240825
  2. PLAVIX [Suspect]
     Active Substance: CLOPIDOGREL BISULFATE
  3. ASPIRIN [Suspect]
     Active Substance: ASPIRIN

REACTIONS (9)
  - Diarrhoea [None]
  - Dizziness [None]
  - Loss of consciousness [None]
  - Head injury [None]
  - Skin laceration [None]
  - Dysstasia [None]
  - Confusional state [None]
  - Blood pressure decreased [None]
  - Gastrointestinal haemorrhage [None]

NARRATIVE: CASE EVENT DATE: 20240824
